FAERS Safety Report 4597763-1 (Version None)
Quarter: 2005Q1

REPORT INFORMATION
  Report Type: 
  Country: None (occurrence: None)
  Receive Date: 20050125
  Receipt Date: 20041115
  Transmission Date: 20050727
  Serious: No
  Sender: FDA-Public Use
  Company Number: USA040876972

PATIENT
  Sex: Female
  Weight: 67 kg

DRUGS (3)
  1. FORTEO [Suspect]
     Indication: FRACTURE
     Dates: start: 20040801
  2. SALINE (SODIUM CHLORIDE) [Suspect]
     Indication: FRACTURE
  3. THYROID TAB [Concomitant]

REACTIONS (2)
  - MEDICATION ERROR [None]
  - PAIN [None]
